FAERS Safety Report 7291739-1 (Version None)
Quarter: 2011Q1

REPORT INFORMATION
  Report Type: 
  Country: None (occurrence: None)
  Receive Date: 20110202
  Receipt Date: 20110119
  Transmission Date: 20110831
  Serious: Yes (Life-Threatening, Other)
  Sender: FDA-Public Use
  Company Number: 1000018064

PATIENT
  Age: 27 Year
  Sex: Female
  Weight: 70 kg

DRUGS (7)
  1. NOVALGIN (METAMIZOLE SODIUM MONOHYDRATE) [Suspect]
     Dosage: 5000 MG, ONCE, ORAL
     Route: 048
     Dates: start: 20101231, end: 20101231
  2. ESCITALOPRAM [Suspect]
     Dosage: 950 MG, ONCE, ORAL
     Route: 048
     Dates: start: 20101231, end: 20101231
  3. TRICYCLIC ANTIDEPRESSANTS (TRICYCLIC ANTIDEPRESSANTS) [Suspect]
     Dates: start: 20101231, end: 20101231
  4. ALCOHOL (ETHANOL) [Suspect]
     Dosage: ORAL
     Route: 048
     Dates: start: 20101231, end: 20101231
  5. ATOSIL (PROMETHAZINE HYDROCHLORIDE) [Suspect]
     Dosage: 2000 MG, ONCE, ORAL
     Route: 048
     Dates: start: 20101231, end: 20101231
  6. CETRIZINE (CETRIZINE HYDROCHLORIDE) [Suspect]
     Dosage: 50 MG, ONCE, ORAL
     Route: 048
     Dates: start: 20101231, end: 20101231
  7. LAMOTRIGINE [Suspect]
     Dosage: 2500 MG, ONCE, ORAL
     Route: 048
     Dates: start: 20101231, end: 20101231

REACTIONS (5)
  - CONVULSION [None]
  - ALCOHOL POISONING [None]
  - TACHYCARDIA [None]
  - SUICIDE ATTEMPT [None]
  - MULTIPLE DRUG OVERDOSE INTENTIONAL [None]
